FAERS Safety Report 12633690 (Version 1)
Quarter: 2016Q3

REPORT INFORMATION
  Report Type: Spontaneous
  Country: US (occurrence: US)
  Receive Date: 20160808
  Receipt Date: 20160808
  Transmission Date: 20161109
  Serious: No
  Sender: FDA-Public Use
  Company Number: US-FRI-1000085018

PATIENT
  Sex: Female

DRUGS (1)
  1. FETZIMA [Suspect]
     Active Substance: LEVOMILNACIPRAN HYDROCHLORIDE
     Dates: end: 20160521

REACTIONS (4)
  - Gait disturbance [Unknown]
  - Therapy cessation [Recovered/Resolved]
  - Irritability [Unknown]
  - Palpitations [Unknown]

NARRATIVE: CASE EVENT DATE: 20160521
